FAERS Safety Report 7387304-8 (Version None)
Quarter: 2011Q1

REPORT INFORMATION
  Report Type: 
  Country: None (occurrence: None)
  Receive Date: 20110331
  Receipt Date: 20110318
  Transmission Date: 20110831
  Serious: Yes (Hospitalization, Other)
  Sender: FDA-Public Use
  Company Number: US-ELI_LILLY_AND_COMPANY-US201103006509

PATIENT
  Sex: Male

DRUGS (4)
  1. ANTIHYPERTENSIVES [Concomitant]
     Indication: BLOOD PRESSURE
  2. VICODIN [Concomitant]
  3. INSULIN [Concomitant]
  4. CIALIS [Suspect]
     Indication: ERECTILE DYSFUNCTION
     Dosage: 20 MG, PRN

REACTIONS (5)
  - GASTROINTESTINAL OBSTRUCTION [None]
  - WEIGHT INCREASED [None]
  - HEADACHE [None]
  - THERAPEUTIC RESPONSE DECREASED [None]
  - ABASIA [None]
